FAERS Safety Report 14403715 (Version 1)
Quarter: 2018Q1

REPORT INFORMATION
  Report Type: Report from Study
  Country: BR (occurrence: BR)
  Receive Date: 20180117
  Receipt Date: 20180117
  Transmission Date: 20180509
  Serious: Yes (Other)
  Sender: FDA-Public Use
  Company Number: BR-SHIRE-BR201801009

PATIENT

DRUGS (2)
  1. ELAPRASE [Suspect]
     Active Substance: IDURSULFASE
     Indication: MUCOPOLYSACCHARIDOSIS II
     Dosage: 24 DF, 1X/2WKS
     Route: 065
     Dates: start: 2010
  2. DIPYRONE [Concomitant]
     Active Substance: DIPYRONE
     Indication: PAIN

REACTIONS (4)
  - Cardiac murmur [Unknown]
  - Incorrect dose administered [Unknown]
  - Arrhythmia [Not Recovered/Not Resolved]
  - Inappropriate schedule of drug administration [Unknown]

NARRATIVE: CASE EVENT DATE: 2010
